FAERS Safety Report 5028833-1 (Version None)
Quarter: 2006Q2

REPORT INFORMATION
  Report Type: 
  Country: None (occurrence: None)
  Receive Date: 20060619
  Receipt Date: 20060131
  Transmission Date: 20061013
  Serious: Yes (Other)
  Sender: FDA-Public Use
  Company Number: DK-BRISTOL-MYERS SQUIBB COMPANY-13353339

PATIENT
  Age: 25 Year
  Sex: Male

DRUGS (1)
  1. DIDANOSINE [Suspect]

REACTIONS (1)
  - PANCREATITIS [None]
